FAERS Safety Report 23692694 (Version 2)
Quarter: 2024Q2

REPORT INFORMATION
  Report Type: Report from Study
  Country: US (occurrence: US)
  Receive Date: 20240401
  Receipt Date: 20240408
  Transmission Date: 20240716
  Serious: Yes (Other)
  Sender: FDA-Public Use
  Company Number: US-ABBVIE-5700207

PATIENT
  Age: 65 Year
  Sex: Female

DRUGS (1)
  1. HUMIRA [Suspect]
     Active Substance: ADALIMUMAB
     Indication: Rheumatoid arthritis
     Route: 058
     Dates: start: 20231009

REACTIONS (5)
  - Lymphoma [Not Recovered/Not Resolved]
  - Invasive ductal breast carcinoma [Unknown]
  - Invasive breast carcinoma [Not Recovered/Not Resolved]
  - Orthostatic hypotension [Unknown]
  - Hormone replacement therapy [Unknown]

NARRATIVE: CASE EVENT DATE: 20231101
